FAERS Safety Report 23302660 (Version 5)
Quarter: 2024Q3

REPORT INFORMATION
  Report Type: Report from Study
  Country: CL (occurrence: CL)
  Receive Date: 20231215
  Receipt Date: 20240801
  Transmission Date: 20241017
  Serious: Yes (Other)
  Sender: JOHNSON AND JOHNSON
  Company Number: CL-JNJFOC-20230703311

PATIENT
  Age: 52 Year
  Sex: Female

DRUGS (2)
  1. SIMPONI [Suspect]
     Active Substance: GOLIMUMAB
     Indication: Rheumatoid arthritis
     Dosage: , LAST DOSE WAS APPLIED ON 11-03-2023
     Route: 058
     Dates: start: 20230605
  2. PREDNISONE [Concomitant]
     Active Substance: PREDNISONE

REACTIONS (11)
  - Post procedural infection [Recovering/Resolving]
  - Tenoplasty [Recovering/Resolving]
  - Fistula [Unknown]
  - Influenza [Recovered/Resolved]
  - Nasopharyngitis [Unknown]
  - Immune system disorder [Unknown]
  - Weight decreased [Unknown]
  - Diarrhoea [Unknown]
  - Asthenia [Unknown]
  - Malaise [Unknown]
  - Abdominal pain [Unknown]

NARRATIVE: CASE EVENT DATE: 20240101
